FAERS Safety Report 8201364-3 (Version None)
Quarter: 2012Q1

REPORT INFORMATION
  Report Type: 
  Country: None (occurrence: None)
  Receive Date: 20120312
  Receipt Date: 20120301
  Transmission Date: 20120608
  Serious: Yes (Hospitalization, Other)
  Sender: FDA-Public Use
  Company Number: CH-TEVA-326328ISR

PATIENT
  Age: 89 Year
  Sex: Female

DRUGS (6)
  1. AMLODIPIN SPIRIG [Concomitant]
     Dosage: 5 MILLIGRAM;
     Route: 048
  2. ENALAPRIL ACTAVIS [Suspect]
     Dosage: 20 MILLIGRAM;
     Route: 048
  3. VITAMIN B-12 [Concomitant]
  4. AMILORIDE HCL AND HYDROCHLOROTHIAZIDE [Suspect]
     Dosage: 5MG/50MG
     Route: 048
     Dates: end: 20111014
  5. METFORMIN HCL [Concomitant]
     Dosage: 1.5 DOSAGE FORMS;
     Route: 048
  6. DIAMICRON [Concomitant]
     Dosage: 80 MILLIGRAM;
     Route: 048

REACTIONS (2)
  - HYPONATRAEMIA [None]
  - ISCHAEMIC STROKE [None]
